FAERS Safety Report 7985452-2 (Version None)
Quarter: 2011Q4

REPORT INFORMATION
  Report Type: 
  Country: None (occurrence: None)
  Receive Date: 20111216
  Receipt Date: 20111213
  Transmission Date: 20120403
  Serious: Yes (Hospitalization)
  Sender: FDA-Public Use
  Company Number: FR-ROCHE-1021472

PATIENT
  Sex: Female

DRUGS (2)
  1. MYCOPHENOLATE MOFETIL (CELLCEPT) [Suspect]
     Indication: TRANSPLANT REJECTION
     Route: 002
     Dates: start: 20100707
  2. CYCLOSPORINE [Suspect]
     Indication: TRANSPLANT REJECTION
     Route: 002
     Dates: start: 20100707

REACTIONS (1)
  - COMPLICATIONS OF TRANSPLANTED KIDNEY [None]
